FAERS Safety Report 5215015-3 (Version None)
Quarter: 2007Q1

REPORT INFORMATION
  Report Type: 
  Country: None (occurrence: None)
  Receive Date: 20070122
  Receipt Date: 20070115
  Transmission Date: 20070707
  Serious: Yes (Other)
  Sender: FDA-Public Use
  Company Number: FR-PFIZER INC-2006090321

PATIENT
  Sex: Male
  Weight: 87 kg

DRUGS (10)
  1. TAHOR [Suspect]
  2. OMEPRAZOLE [Suspect]
  3. NOCTRAN 10 [Suspect]
  4. PIROXICAM [Suspect]
  5. INSULIN ASPART [Concomitant]
  6. ENALAPRIL MALEATE [Concomitant]
  7. INDAPAMIDE [Concomitant]
  8. FUROSEMIDE [Concomitant]
  9. ACETAMINOPHEN AND CODEINE PHOSPHATE [Concomitant]
  10. ALL OTHER THERAPEUTIC PRODUCTS [Concomitant]

REACTIONS (4)
  - GAMMA-GLUTAMYLTRANSFERASE INCREASED [None]
  - MYALGIA [None]
  - PANCYTOPENIA [None]
  - RENAL FAILURE [None]
